FAERS Safety Report 23569240 (Version 1)
Quarter: 2024Q1

REPORT INFORMATION
  Report Type: Spontaneous
  Country: IN (occurrence: IN)
  Receive Date: 20240227
  Receipt Date: 20240227
  Transmission Date: 20240409
  Serious: Yes (Hospitalization, Other)
  Sender: FDA-Public Use
  Company Number: IN-MLMSERVICE-20240212-4826182-1

PATIENT
  Age: 56 Year
  Sex: Female

DRUGS (1)
  1. METHOTREXATE [Suspect]
     Active Substance: METHOTREXATE
     Indication: Arthritis viral
     Dosage: LOW DOSE

REACTIONS (3)
  - Interstitial lung disease [Recovered/Resolved]
  - Hypersensitivity pneumonitis [Recovered/Resolved]
  - Non-cardiogenic pulmonary oedema [Recovered/Resolved]
